FAERS Safety Report 12381382 (Version 1)
Quarter: 2016Q2

REPORT INFORMATION
  Report Type: Spontaneous
  Country: US (occurrence: None)
  Receive Date: 20160517
  Receipt Date: 20160517
  Transmission Date: 20160815
  Serious: No
  Sender: FDA-Public Use
  Company Number: None

PATIENT
  Age: 32 Year
  Sex: Female

DRUGS (8)
  1. HYDROCO/APAP [Concomitant]
     Active Substance: ACETAMINOPHEN\HYDROCODONE
  2. MEDROXYPR AC [Concomitant]
  3. LIDOCAINE. [Concomitant]
     Active Substance: LIDOCAINE
  4. LEFUNOMIDE [Concomitant]
  5. XELJANZ [Suspect]
     Active Substance: TOFACITINIB CITRATE
     Indication: RHEUMATOID ARTHRITIS
     Route: 048
     Dates: start: 20141203
  6. LORAZEPAM. [Concomitant]
     Active Substance: LORAZEPAM
  7. MELOXICAM. [Concomitant]
     Active Substance: MELOXICAM
  8. DULOXETINE. [Concomitant]
     Active Substance: DULOXETINE

REACTIONS (1)
  - Rheumatoid arthritis [None]

NARRATIVE: CASE EVENT DATE: 201604
